FAERS Safety Report 20039489 (Version 2)
Quarter: 2022Q1

REPORT INFORMATION
  Report Type: Spontaneous
  Country: US (occurrence: US)
  Receive Date: 20211105
  Receipt Date: 20220222
  Transmission Date: 20220423
  Serious: Yes (Hospitalization, Other)
  Sender: FDA-Public Use
  Company Number: US-Covis Pharma GmbH-2021COV24499

PATIENT
  Age: 30 Year
  Sex: Female

DRUGS (3)
  1. MAKENA [Suspect]
     Active Substance: HYDROXYPROGESTERONE CAPROATE
     Indication: Premature delivery
     Route: 058
     Dates: start: 20210614, end: 20211018
  2. ASPIRIN [Concomitant]
     Active Substance: ASPIRIN
     Indication: Product used for unknown indication
     Dates: start: 20210520, end: 20211022
  3. PNV with Fe [Concomitant]
     Indication: Product used for unknown indication
     Dates: start: 20210520, end: 20211111

REACTIONS (4)
  - Preterm premature rupture of membranes [Recovered/Resolved]
  - Premature labour [Recovered/Resolved]
  - Premature delivery [Recovered/Resolved]
  - Off label use [Unknown]

NARRATIVE: CASE EVENT DATE: 20210101
